FAERS Safety Report 5903199-0 (Version None)
Quarter: 2008Q3

REPORT INFORMATION
  Report Type: 
  Country: None (occurrence: None)
  Receive Date: 20080930
  Receipt Date: 20080925
  Transmission Date: 20090109
  Serious: Yes (Death, Other)
  Sender: FDA-Public Use
  Company Number: US-BRISTOL-MYERS SQUIBB COMPANY-14348015

PATIENT
  Age: 81 Year
  Sex: Male

DRUGS (1)
  1. ABILIFY [Suspect]
     Indication: PARANOIA

REACTIONS (2)
  - CELLULITIS [None]
  - DEATH [None]
